FAERS Safety Report 6739422-2 (Version None)
Quarter: 2010Q2

REPORT INFORMATION
  Report Type: 
  Country: None (occurrence: None)
  Receive Date: 20100525
  Receipt Date: 20100514
  Transmission Date: 20101027
  Serious: Yes (Hospitalization)
  Sender: FDA-Public Use
  Company Number: DE-WYE-G06116410

PATIENT
  Sex: Male

DRUGS (3)
  1. RAPAMUNE [Suspect]
     Indication: RENAL TRANSPLANT
     Route: 048
     Dates: end: 20100401
  2. DECORTIN [Concomitant]
     Indication: RENAL TRANSPLANT
     Route: 048
  3. CELL CEPT [Concomitant]
     Indication: RENAL TRANSPLANT
     Route: 048

REACTIONS (5)
  - ACCIDENTAL OVERDOSE [None]
  - BRONCHOPULMONARY ASPERGILLOSIS [None]
  - DRUG INTERACTION [None]
  - IMMUNOSUPPRESSANT DRUG LEVEL INCREASED [None]
  - PNEUMONIA [None]
